FAERS Safety Report 6681841-7 (Version None)
Quarter: 2010Q2

REPORT INFORMATION
  Report Type: 
  Country: None (occurrence: None)
  Receive Date: 20100414
  Receipt Date: 20100225
  Transmission Date: 20101027
  Serious: No
  Sender: FDA-Public Use
  Company Number: US-BAYER-201014076BCC

PATIENT
  Age: 15 Year
  Sex: Female

DRUGS (1)
  1. MIDOL [Suspect]
     Indication: DYSMENORRHOEA
     Dosage: TOTAL DAILY DOSE: 880 MG  UNIT DOSE: 220 MG
     Route: 048
     Dates: start: 20100225

REACTIONS (1)
  - NO ADVERSE EVENT [None]
